FAERS Safety Report 23994207 (Version 1)
Quarter: 2024Q2

REPORT INFORMATION
  Report Type: Spontaneous
  Country: US (occurrence: None)
  Receive Date: 20240618
  Receipt Date: 20240618
  Transmission Date: 20240716
  Serious: Yes (Hospitalization)
  Sender: FDA-Public Use
  Company Number: None

PATIENT
  Sex: Male

DRUGS (11)
  1. PULMOZYME [Suspect]
     Active Substance: DORNASE ALFA
     Indication: Cystic fibrosis
     Dates: start: 20151014
  2. ALBUTEROL AER HFA [Concomitant]
  3. ATROVENT HFA AER [Concomitant]
  4. BAOSIMI TWO POW [Concomitant]
  5. CLONIDINE [Concomitant]
     Active Substance: CLONIDINE
  6. CREON10 [Concomitant]
  7. CYPROHEPTADINE HYDROCHLORIDE [Concomitant]
     Active Substance: CYPROHEPTADINE HYDROCHLORIDE
  8. FAMOTIDINE TAB 40MG [Concomitant]
  9. GABAPENTIN [Concomitant]
     Active Substance: GABAPENTIN
  10. HYDROXYZ HCL TAB [Concomitant]
  11. MIRTAZAPINE TAB 15MG [Concomitant]

REACTIONS (1)
  - Hospitalisation [None]
